FAERS Safety Report 5381888-7 (Version None)
Quarter: 2007Q2

REPORT INFORMATION
  Report Type: 
  Country: None (occurrence: None)
  Receive Date: 20070629
  Receipt Date: 20070320
  Transmission Date: 20071010
  Serious: No
  Sender: FDA-Public Use
  Company Number: PHEH2007US03362

PATIENT
  Age: 14 Year
  Sex: Male

DRUGS (2)
  1. EXJADE [Suspect]
     Indication: THALASSAEMIA
     Dosage: ORAL : 750 MG, QD, ORAL
     Route: 048
     Dates: start: 20060301, end: 20061001
  2. EXJADE [Suspect]
     Indication: THALASSAEMIA
     Dosage: ORAL : 750 MG, QD, ORAL
     Route: 048
     Dates: start: 20061001

REACTIONS (3)
  - DRUG DISPENSING ERROR [None]
  - SERUM FERRITIN INCREASED [None]
  - WEIGHT INCREASED [None]
